FAERS Safety Report 5056253-2 (Version None)
Quarter: 2006Q3

REPORT INFORMATION
  Report Type: 
  Country: None (occurrence: None)
  Receive Date: 20060720
  Receipt Date: 20060710
  Transmission Date: 20061208
  Serious: Yes (Hospitalization)
  Sender: FDA-Public Use
  Company Number: 2006GB01184

PATIENT
  Age: 79 Year
  Sex: Female

DRUGS (3)
  1. QUETIAPINE FUMARATE [Suspect]
     Indication: SCHIZOPHRENIA
     Route: 048
     Dates: start: 20060522
  2. OXYBUTYNIN [Concomitant]
     Route: 048
  3. SENNA [Concomitant]
     Route: 048

REACTIONS (3)
  - BLOOD POTASSIUM DECREASED [None]
  - ILEUS PARALYTIC [None]
  - TREATMENT NONCOMPLIANCE [None]
